FAERS Safety Report 8264346-1 (Version None)
Quarter: 2012Q2

REPORT INFORMATION
  Report Type: 
  Country: None (occurrence: None)
  Receive Date: 20120406
  Receipt Date: 20120330
  Transmission Date: 20120825
  Serious: No
  Sender: FDA-Public Use
  Company Number: US-PFIZER INC-2012084302

PATIENT
  Sex: Male

DRUGS (1)
  1. VFEND [Suspect]
     Indication: PANCREATIC DISORDER
     Dosage: 200 MG, 2X/DAY

REACTIONS (1)
  - DIPLOPIA [None]
